FAERS Safety Report 8301904-X (Version None)
Quarter: 2012Q2

REPORT INFORMATION
  Report Type: 
  Country: None (occurrence: None)
  Receive Date: 20120420
  Receipt Date: 20120410
  Transmission Date: 20120825
  Serious: Yes (Death)
  Sender: FDA-Public Use
  Company Number: CA-ROCHE-1058748

PATIENT
  Sex: Male
  Weight: 83.082 kg

DRUGS (8)
  1. MABTHERA [Suspect]
     Indication: CHRONIC LYMPHOCYTIC LEUKAEMIA RECURRENT
     Route: 042
     Dates: start: 20120124, end: 20120221
  2. ULORIC [Concomitant]
  3. NORVASC [Concomitant]
  4. METHYLPREDNISOLONE [Concomitant]
     Indication: PREMEDICATION
     Route: 042
     Dates: start: 20120221, end: 20120221
  5. ACETAMINOPHEN [Concomitant]
     Indication: PREMEDICATION
     Route: 048
     Dates: start: 20120221, end: 20120221
  6. DIPHENHYDRAMINE HCL [Concomitant]
     Indication: PREMEDICATION
     Route: 048
     Dates: start: 20120221, end: 20120221
  7. NEXIUM [Concomitant]
  8. ATACAND [Concomitant]

REACTIONS (1)
  - CARDIAC DISORDER [None]
